FAERS Safety Report 8600449-7 (Version None)
Quarter: 2012Q3

REPORT INFORMATION
  Report Type: 
  Country: None (occurrence: None)
  Receive Date: 20120802
  Receipt Date: 20120719
  Transmission Date: 20120928
  Serious: Yes (Hospitalization)
  Sender: FDA-Public Use
  Company Number: NGX_01199_2012

PATIENT
  Age: 75 Year

DRUGS (1)
  1. QUTENZA [Suspect]
     Indication: POST HERPETIC NEURALGIA
     Dosage: 1 DF, [PATCH APPLIED TO THORAX AND BACK AREA] TOPICAL
     Route: 061
     Dates: start: 20120719, end: 20120719

REACTIONS (1)
  - ANGINA UNSTABLE [None]
